FAERS Safety Report 6694370-1 (Version None)
Quarter: 2010Q2

REPORT INFORMATION
  Report Type: 
  Country: None (occurrence: None)
  Receive Date: 20100423
  Receipt Date: 20100413
  Transmission Date: 20101027
  Serious: Yes (Other)
  Sender: FDA-Public Use
  Company Number: US-PFIZER INC-2010046801

PATIENT
  Sex: Female
  Weight: 72.562 kg

DRUGS (11)
  1. LYRICA [Suspect]
     Indication: FIBROMYALGIA
     Dosage: 100 MG, 3X/DAY
     Route: 048
     Dates: start: 20090101
  2. CHANTIX [Suspect]
     Indication: SMOKING CESSATION THERAPY
     Dosage: UNK
     Route: 048
     Dates: start: 20100402
  3. LORAZEPAM [Suspect]
     Indication: ANXIETY
     Dosage: 0.5 MG, 1X/DAY
     Route: 048
  4. AMITRIPTYLINE [Suspect]
     Dosage: 10 MG, 1X/DAY
     Route: 048
  5. LEVOTHYROXINE [Concomitant]
     Dosage: 0.075 MG, 1X/DAY
  6. BENAZEPRIL [Concomitant]
     Dosage: 20 MG, 1X/DAY
  7. METFORMIN [Concomitant]
     Indication: DIABETES MELLITUS
     Dosage: 500 MG, 2X/DAY
     Route: 048
  8. TOPAMAX [Concomitant]
     Indication: MIGRAINE
     Dosage: 300 MG, UNK
     Route: 048
     Dates: start: 20070101
  9. CRESTOR [Concomitant]
     Indication: BLOOD CHOLESTEROL INCREASED
     Dosage: 40 MG, 1X/DAY
     Route: 048
  10. PROPRANOLOL [Concomitant]
     Indication: HYPERTENSION
     Dosage: 80 MG, 1X/DAY
     Route: 048
  11. VERAPAMIL [Concomitant]
     Indication: HYPERTENSION
     Dosage: 240 MG, 1X/DAY
     Route: 048

REACTIONS (4)
  - CONFUSIONAL STATE [None]
  - MEMORY IMPAIRMENT [None]
  - SINUSITIS [None]
  - SURGERY [None]
